FAERS Safety Report 22065451 (Version 1)
Quarter: 2023Q1

REPORT INFORMATION
  Report Type: Report from Study
  Country: FR (occurrence: FR)
  Receive Date: 20230306
  Receipt Date: 20230306
  Transmission Date: 20230417
  Serious: Yes (Other)
  Sender: FDA-Public Use
  Company Number: FR-JNJFOC-20210949165

PATIENT

DRUGS (1)
  1. CONCERTA [Suspect]
     Active Substance: METHYLPHENIDATE HYDROCHLORIDE
     Indication: Product used for unknown indication
     Route: 048

REACTIONS (7)
  - Neutropenia [Unknown]
  - Epistaxis [Unknown]
  - Hypoglycaemia [Unknown]
  - Lung disorder [Unknown]
  - Fungal infection [Unknown]
  - Headache [Unknown]
  - Vertigo [Unknown]
